FAERS Safety Report 5678693-0 (Version None)
Quarter: 2008Q1

REPORT INFORMATION
  Report Type: 
  Country: None (occurrence: None)
  Receive Date: 20080321
  Receipt Date: 20080317
  Transmission Date: 20080703
  Serious: Yes (Hospitalization)
  Sender: FDA-Public Use
  Company Number: 2008SP000616

PATIENT
  Age: 79 Year
  Sex: Male
  Weight: 72.1219 kg

DRUGS (1)
  1. LUNESTA [Suspect]
     Dosage: 1 MG; PRN; ORAL; 2 MG; ORAL
     Route: 048
     Dates: start: 20071201

REACTIONS (3)
  - DRUG INEFFECTIVE [None]
  - INSOMNIA [None]
  - STRESS [None]
